FAERS Safety Report 7984816-0 (Version None)
Quarter: 2011Q4

REPORT INFORMATION
  Report Type: 
  Country: None (occurrence: None)
  Receive Date: 20111216
  Receipt Date: 20110913
  Transmission Date: 20120403
  Serious: No
  Sender: FDA-Public Use
  Company Number: US-ALLERGAN-1112147US

PATIENT
  Age: 67 Year
  Sex: Female

DRUGS (2)
  1. LATISSE [Suspect]
     Indication: GROWTH OF EYELASHES
     Dosage: 1 GTT, QHS
     Route: 061
     Dates: start: 20110813
  2. STAY FREE MOISTURIZING DROPS [Concomitant]
     Indication: EYE LUBRICATION THERAPY
     Dosage: UNK

REACTIONS (1)
  - EYELIDS PRURITUS [None]
